FAERS Safety Report 7311986-X (Version None)
Quarter: 2011Q1

REPORT INFORMATION
  Report Type: 
  Country: None (occurrence: None)
  Receive Date: 20110224
  Receipt Date: 20110218
  Transmission Date: 20110831
  Serious: Yes (Other)
  Sender: FDA-Public Use
  Company Number: US-PFIZER INC-2011006918

PATIENT
  Age: 68 Year
  Sex: Female
  Weight: 63.492 kg

DRUGS (1)
  1. ADVIL PM [Suspect]
     Dosage: 2 TABLETS
     Route: 048
     Dates: start: 20080101

REACTIONS (1)
  - HYPERTENSION [None]
